FAERS Safety Report 4344785-1 (Version None)
Quarter: 2004Q2

REPORT INFORMATION
  Report Type: 
  Country: None (occurrence: None)
  Receive Date: 20040420
  Receipt Date: 20040407
  Transmission Date: 20050107
  Serious: Yes (Other)
  Sender: FDA-Public Use
  Company Number: US-JNJFOC-20040401645

PATIENT
  Age: 63 Year
  Sex: Male
  Weight: 98.8842 kg

DRUGS (4)
  1. REMICADE [Suspect]
     Indication: CROHN'S DISEASE
     Dosage: 4 INFUSIONS TOTAL
     Dates: end: 20040223
  2. PREVACID (PREVACID) [Concomitant]
  3. CARDURA [Concomitant]
  4. ATENOLOL [Concomitant]

REACTIONS (2)
  - MYCOSIS FUNGOIDES [None]
  - T-CELL LYMPHOMA [None]
